FAERS Safety Report 15999807 (Version 2)
Quarter: 2019Q2

REPORT INFORMATION
  Report Type: Spontaneous
  Country: GR (occurrence: GR)
  Receive Date: 20190225
  Receipt Date: 20190524
  Transmission Date: 20190711
  Serious: Yes (Hospitalization, Other)
  Sender: FDA-Public Use
  Company Number: GR-ASTRAZENECA-2019SE27839

PATIENT
  Age: 60 Year
  Sex: Male
  Weight: 78 kg

DRUGS (4)
  1. FORXIGA [Suspect]
     Active Substance: DAPAGLIFLOZIN
     Indication: TYPE 2 DIABETES MELLITUS
     Route: 048
  2. JENTADUETO [Concomitant]
     Active Substance: LINAGLIPTIN\METFORMIN HYDROCHLORIDE
     Dosage: 2.5+1000 MG 1X2 P.O.
  3. SALOSPIR [Concomitant]
     Active Substance: ASPIRIN
  4. LIPITOR [Concomitant]
     Active Substance: ATORVASTATIN CALCIUM
     Indication: HYPERCHOLESTEROLAEMIA

REACTIONS (2)
  - Upper respiratory tract infection [Unknown]
  - Diabetic ketoacidosis [Recovered/Resolved]

NARRATIVE: CASE EVENT DATE: 20190213
